FAERS Safety Report 6071771-6 (Version None)
Quarter: 2009Q1

REPORT INFORMATION
  Report Type: 
  Country: None (occurrence: None)
  Receive Date: 20090210
  Receipt Date: 20081218
  Transmission Date: 20090719
  Serious: No
  Sender: FDA-Public Use
  Company Number: US-BAYER-200841383NA

PATIENT
  Age: 37 Year
  Sex: Female

DRUGS (5)
  1. MIRENA [Suspect]
     Indication: CONTRACEPTION
     Route: 015
     Dates: start: 20070901
  2. KEFLEX [Concomitant]
     Indication: DRUG USE FOR UNKNOWN INDICATION
  3. CIPROFLOXACIN HCL [Concomitant]
     Indication: DRUG USE FOR UNKNOWN INDICATION
  4. DOXYCYCLINE [Concomitant]
     Indication: DRUG USE FOR UNKNOWN INDICATION
  5. FLAGYL [Concomitant]
     Indication: DRUG USE FOR UNKNOWN INDICATION

REACTIONS (6)
  - ABDOMINAL DISTENSION [None]
  - BLADDER PAIN [None]
  - DYSURIA [None]
  - POLLAKIURIA [None]
  - URETHRAL PAIN [None]
  - URINARY TRACT INFECTION [None]
